FAERS Safety Report 12105186 (Version 2)
Quarter: 2016Q1

REPORT INFORMATION
  Report Type: Spontaneous
  Country: US (occurrence: US)
  Receive Date: 20160223
  Receipt Date: 20160315
  Transmission Date: 20160526
  Serious: No
  Sender: FDA-Public Use
  Company Number: US-GLAXOSMITHKLINE-US2016GSK024652

PATIENT
  Sex: Female
  Weight: 78.46 kg

DRUGS (1)
  1. BREO ELLIPTA [Suspect]
     Active Substance: FLUTICASONE FUROATE\VILANTEROL TRIFENATATE
     Indication: ASTHMA
     Dosage: UNK UNK, U
     Route: 048
     Dates: start: 20151027, end: 201602

REACTIONS (2)
  - Oral mucosal blistering [Recovered/Resolved]
  - Hypersensitivity [Recovered/Resolved]
